FAERS Safety Report 4353951-0 (Version None)
Quarter: 2004Q2

REPORT INFORMATION
  Report Type: 
  Country: None (occurrence: None)
  Receive Date: 20040506
  Receipt Date: 20040210
  Transmission Date: 20050107
  Serious: No
  Sender: FDA-Public Use
  Company Number: US-GLAXOSMITHKLINE-A0497763A

PATIENT
  Age: 57 Year
  Sex: Female

DRUGS (6)
  1. AVANDAMET [Suspect]
     Route: 048
     Dates: start: 20031201
  2. GLUCOPHAGE XR [Concomitant]
  3. AVALIDE [Concomitant]
  4. VAGIFEM [Concomitant]
  5. UNKNOWN MEDICATION [Concomitant]
  6. AMBIEN [Concomitant]

REACTIONS (3)
  - BLOOD URINE PRESENT [None]
  - NAUSEA [None]
  - URINARY TRACT INFECTION [None]
